FAERS Safety Report 5123678-6 (Version None)
Quarter: 2006Q4

REPORT INFORMATION
  Report Type: 
  Country: None (occurrence: None)
  Receive Date: 20061010
  Receipt Date: 20060824
  Transmission Date: 20070319
  Serious: Yes (Other)
  Sender: FDA-Public Use
  Company Number: PHBS2006JP12960

PATIENT
  Sex: Female

DRUGS (3)
  1. VOLTAREN [Suspect]
     Dosage: UNK, UNK
     Route: 048
     Dates: start: 20060201, end: 20060801
  2. BLOPRESS [Concomitant]
     Dosage: 8 MG/DAY
     Route: 048
  3. LASIX [Concomitant]
     Route: 048

REACTIONS (1)
  - CARDIAC HYPERTROPHY [None]
